FAERS Safety Report 13555926 (Version 2)
Quarter: 2018Q4

REPORT INFORMATION
  Report Type: Spontaneous
  Country: US (occurrence: US)
  Receive Date: 20170517
  Receipt Date: 20181002
  Transmission Date: 20190204
  Serious: No
  Sender: FDA-Public Use
  Company Number: US-SA-2016SA205664

PATIENT
  Age: 68 Year
  Sex: Female

DRUGS (2)
  1. TOUJEO [Suspect]
     Active Substance: INSULIN GLARGINE
     Indication: TYPE 2 DIABETES MELLITUS
     Dosage: 120 DF,QD
     Route: 065
     Dates: start: 2014
  2. TOUJEO [Suspect]
     Active Substance: INSULIN GLARGINE
     Dosage: 110 U, QD
     Route: 065

REACTIONS (5)
  - Blood glucose abnormal [Unknown]
  - Malaise [Unknown]
  - Stress [Unknown]
  - Therapeutic response decreased [Unknown]
  - Device issue [Unknown]
